FAERS Safety Report 22058328 (Version 3)
Quarter: 2023Q2

REPORT INFORMATION
  Report Type: Report from Study
  Country: US (occurrence: US)
  Receive Date: 20230303
  Receipt Date: 20230512
  Transmission Date: 20230721
  Serious: No
  Sender: FDA-Public Use
  Company Number: US-002147023-NVSC2023US048495

PATIENT
  Sex: Female

DRUGS (1)
  1. ENTRESTO [Suspect]
     Active Substance: SACUBITRIL\VALSARTAN
     Indication: Product used for unknown indication
     Dosage: 1 DOSAGE FORM, BID (49/51 MG)
     Route: 048

REACTIONS (7)
  - Herpes zoster [Unknown]
  - Arthralgia [Unknown]
  - Vertigo [Recovered/Resolved]
  - Hypersensitivity [Unknown]
  - Cough [Unknown]
  - Throat irritation [Unknown]
  - Dizziness [Recovered/Resolved]
